FAERS Safety Report 25683901 (Version 2)
Quarter: 2025Q3

REPORT INFORMATION
  Report Type: Report from Study
  Country: BR (occurrence: BR)
  Receive Date: 20250815
  Receipt Date: 20250818
  Transmission Date: 20251021
  Serious: Yes (Hospitalization)
  Sender: JOHNSON AND JOHNSON
  Company Number: BR-JNJFOC-20250813789

PATIENT
  Age: 49 Year
  Sex: Male
  Weight: 100 kg

DRUGS (3)
  1. INFLIXIMAB [Suspect]
     Active Substance: INFLIXIMAB
     Indication: Rheumatoid arthritis
     Dosage: 4 FULL VIALS
     Route: 041
  2. PREDSIM [PREDNISOLONE] [Concomitant]
     Indication: Rheumatoid arthritis
     Route: 048
  3. PREDSIM [PREDNISOLONE] [Concomitant]
     Indication: Pain

REACTIONS (7)
  - Sepsis [Recovering/Resolving]
  - Gout [Recovering/Resolving]
  - Inflammation [Recovering/Resolving]
  - Drug ineffective [Unknown]
  - Decreased immune responsiveness [Recovering/Resolving]
  - Gait disturbance [Not Recovered/Not Resolved]
  - Weight increased [Recovering/Resolving]
